FAERS Safety Report 5009485-3 (Version None)
Quarter: 2006Q2

REPORT INFORMATION
  Report Type: 
  Country: None (occurrence: None)
  Receive Date: 20060522
  Receipt Date: 20060509
  Transmission Date: 20061013
  Serious: Yes (Other)
  Sender: FDA-Public Use
  Company Number: 2006063596

PATIENT
  Sex: Female
  Weight: 53.5244 kg

DRUGS (2)
  1. CELEBREX [Suspect]
     Indication: OSTEOARTHRITIS
     Dosage: 200 MG (100 MG, 2 IN 1 D)
     Dates: end: 20060426
  2. ALL OTHER THERAPEUTIC PRODUCTS (ALL OTHER THERAPEUTIC PRODUCTS) [Concomitant]

REACTIONS (10)
  - DRUG INEFFECTIVE [None]
  - DYSPHAGIA [None]
  - DYSPHONIA [None]
  - FOOT FRACTURE [None]
  - GASTRIC ULCER [None]
  - GASTRITIS EROSIVE [None]
  - MALAISE [None]
  - PHARYNGOLARYNGEAL PAIN [None]
  - THERMAL BURN [None]
  - THROAT IRRITATION [None]
